FAERS Safety Report 15818128 (Version 1)
Quarter: 2019Q1

REPORT INFORMATION
  Report Type: Spontaneous
  Country: US (occurrence: US)
  Receive Date: 20190113
  Receipt Date: 20190113
  Transmission Date: 20190417
  Serious: No
  Sender: FDA-Public Use
  Company Number: US-COOPERSURGICAL, INC.-US-2018CPS018989

PATIENT
  Sex: Female
  Weight: 59 kg

DRUGS (4)
  1. IBUPROFEN. [Concomitant]
     Active Substance: IBUPROFEN
  2. LECITHIN [Concomitant]
     Active Substance: LECITHIN
  3. PARAGARD T 380A [Suspect]
     Active Substance: COPPER
     Indication: CONTRACEPTION
     Dates: start: 20180226
  4. DICLOXACILL [Concomitant]

REACTIONS (2)
  - Exposure via breast milk [Unknown]
  - Vaginal haemorrhage [Unknown]
